FAERS Safety Report 9628806 (Version 1)
Quarter: 2013Q4

REPORT INFORMATION
  Report Type: Spontaneous
  Country: US (occurrence: US)
  Receive Date: 20131017
  Receipt Date: 20131017
  Transmission Date: 20140711
  Serious: No
  Sender: FDA-Public Use
  Company Number: US-GLAXOSMITHKLINE-A1008386A

PATIENT
  Age: 52 Year
  Sex: Female

DRUGS (7)
  1. CEFUROXIME AXETIL [Suspect]
     Indication: UPPER RESPIRATORY TRACT INFECTION
     Dosage: 1TAB TWICE PER DAY
     Route: 048
     Dates: start: 20130113
  2. BENZONATATE [Concomitant]
  3. BETHANECHOL [Concomitant]
  4. ZANAFLEX [Concomitant]
  5. AVONEX [Concomitant]
  6. FISH OIL [Concomitant]
  7. ONE A DAY VITAMIN [Concomitant]

REACTIONS (2)
  - Nausea [Not Recovered/Not Resolved]
  - Rhinorrhoea [Unknown]
